FAERS Safety Report 7546253-2 (Version None)
Quarter: 2011Q2

REPORT INFORMATION
  Report Type: 
  Country: None (occurrence: None)
  Receive Date: 20110614
  Receipt Date: 20040518
  Transmission Date: 20111010
  Serious: Yes (Hospitalization)
  Sender: FDA-Public Use
  Company Number: PHFR2004GB01050

PATIENT
  Sex: Male

DRUGS (6)
  1. CLOZAPINE [Suspect]
     Indication: SCHIZOPHRENIA
     Dosage: 350 MG/DAY
     Route: 048
     Dates: start: 19990608, end: 20040316
  2. METOCLOPRAMIDE [Concomitant]
     Indication: NAUSEA
     Dosage: 30 MG/DAY
     Route: 048
     Dates: start: 20010101
  3. LANSOPRAZOLE [Concomitant]
     Indication: DYSPEPSIA
     Dosage: 30 MG/DAY
     Route: 048
  4. GABAPENTIN [Concomitant]
     Indication: NEURALGIA
     Dosage: 2400 MG/DAY
     Route: 048
     Dates: start: 20000101
  5. METFORMIN HCL [Concomitant]
     Indication: TYPE 2 DIABETES MELLITUS
     Dosage: 2000 MG/DAY
     Route: 048
     Dates: start: 20000101
  6. GLYBURIDE [Concomitant]
     Indication: DIABETES MELLITUS
     Dosage: 5 MG/DAY
     Route: 048

REACTIONS (6)
  - WEIGHT DECREASED [None]
  - METASTATIC NEOPLASM [None]
  - BODY TEMPERATURE INCREASED [None]
  - INFECTION [None]
  - THYROID CANCER [None]
  - FULL BLOOD COUNT INCREASED [None]
